FAERS Safety Report 24539592 (Version 1)
Quarter: 2024Q4

REPORT INFORMATION
  Report Type: Spontaneous
  Country: GB (occurrence: GB)
  Receive Date: 20241023
  Receipt Date: 20241023
  Transmission Date: 20250114
  Serious: Yes (Death, Hospitalization, Other)
  Sender: GRIFOLS
  Company Number: None

PATIENT
  Age: 70 Year
  Sex: Male

DRUGS (1)
  1. GAMUNEX [Suspect]
     Active Substance: HUMAN IMMUNOGLOBULIN G
     Indication: Adverse drug reaction
     Dosage: 80 GRAM, Q.3WK.

REACTIONS (2)
  - Sepsis [Fatal]
  - Cholecystitis infective [Unknown]

NARRATIVE: CASE EVENT DATE: 20241007
